FAERS Safety Report 7713556-8 (Version None)
Quarter: 2011Q3

REPORT INFORMATION
  Report Type: 
  Country: None (occurrence: None)
  Receive Date: 20110826
  Receipt Date: 20110801
  Transmission Date: 20111222
  Serious: Yes (Hospitalization)
  Sender: FDA-Public Use
  Company Number: SK-JNJFOC-20110811135

PATIENT
  Sex: Female
  Weight: 80 kg

DRUGS (3)
  1. REMICADE [Suspect]
     Indication: COLITIS ULCERATIVE
     Route: 042
  2. VALCYTE [Concomitant]
     Dates: start: 20110706
  3. REMICADE [Suspect]
     Route: 042
     Dates: start: 20110624

REACTIONS (2)
  - RASH GENERALISED [None]
  - ANGIOEDEMA [None]
